FAERS Safety Report 23039946 (Version 1)
Quarter: 2023Q4

REPORT INFORMATION
  Report Type: Report from Study
  Country: US (occurrence: US)
  Receive Date: 20231006
  Receipt Date: 20231006
  Transmission Date: 20240110
  Serious: Yes (Hospitalization, Other)
  Sender: FDA-Public Use
  Company Number: US-KARYOPHARM-2023KPT002005

PATIENT
  Age: 5 Year
  Sex: Female
  Weight: 22.2 kg

DRUGS (1)
  1. SELINEXOR [Suspect]
     Active Substance: SELINEXOR
     Indication: Astrocytoma
     Dosage: 55 MG/M2
     Dates: start: 20230511

REACTIONS (5)
  - Nausea [Not Recovered/Not Resolved]
  - Depressed level of consciousness [Recovered/Resolved]
  - Hypokalaemia [Recovered/Resolved]
  - Diarrhoea [Recovered/Resolved]
  - Decreased appetite [Not Recovered/Not Resolved]

NARRATIVE: CASE EVENT DATE: 20230913
